FAERS Safety Report 24112364 (Version 1)
Quarter: 2024Q3

REPORT INFORMATION
  Report Type: Report from Study
  Country: RU (occurrence: None)
  Receive Date: 20240719
  Receipt Date: 20240719
  Transmission Date: 20241017
  Serious: Yes (Hospitalization, Other)
  Sender: ASTRAZENECA
  Company Number: 2019SF88249

PATIENT
  Age: 78 Year
  Sex: Male
  Weight: 67 kg

DRUGS (1)
  1. BRILINTA [Suspect]
     Active Substance: TICAGRELOR
     Indication: Myocardial infarction
     Route: 048
     Dates: start: 20190711

REACTIONS (2)
  - Coronary artery occlusion [Unknown]
  - Carotid artery occlusion [Unknown]
